FAERS Safety Report 17980790 (Version 1)
Quarter: 2020Q3

REPORT INFORMATION
  Report Type: Spontaneous
  Country: CA (occurrence: CA)
  Receive Date: 20200704
  Receipt Date: 20200704
  Transmission Date: 20201103
  Serious: Yes (Life-Threatening, Other)
  Sender: FDA-Public Use
  Company Number: CA-ACCORD-188771

PATIENT
  Age: 66 Year
  Sex: Female

DRUGS (4)
  1. PREDNISONE. [Suspect]
     Active Substance: PREDNISONE
     Indication: DERMATOMYOSITIS
  2. HYDROXYCHLOROQUINE [Suspect]
     Active Substance: HYDROXYCHLOROQUINE
     Indication: DERMATOMYOSITIS
  3. METHOTREXATE. [Suspect]
     Active Substance: METHOTREXATE
     Indication: DERMATOMYOSITIS
     Route: 048
  4. AZATHIOPRINE. [Suspect]
     Active Substance: AZATHIOPRINE
     Indication: DERMATOMYOSITIS

REACTIONS (2)
  - Mycobacterium avium complex infection [Recovering/Resolving]
  - Osteomyelitis [Recovering/Resolving]

NARRATIVE: CASE EVENT DATE: 201712
